FAERS Safety Report 9562457 (Version 1)
Quarter: 2013Q3

REPORT INFORMATION
  Report Type: Spontaneous
  Country: FR (occurrence: FR)
  Receive Date: 20130927
  Receipt Date: 20130927
  Transmission Date: 20140515
  Serious: Yes (Hospitalization)
  Sender: FDA-Public Use
  Company Number: FR-GLAXOSMITHKLINE-B0923270A

PATIENT
  Age: 52 Year
  Sex: Female
  Weight: 92 kg

DRUGS (10)
  1. SERETIDE [Suspect]
     Indication: ASTHMA
     Dosage: 1PUFF TWICE PER DAY
     Route: 055
  2. SUBUTEX [Suspect]
     Indication: PRODUCT USED FOR UNKNOWN INDICATION
     Dosage: 4MG THREE TIMES PER DAY
     Route: 048
  3. LYRICA [Concomitant]
     Dosage: 125MG PER DAY
     Route: 048
  4. ATARAX [Concomitant]
     Dosage: 25MG TWICE PER DAY
     Route: 048
  5. LASILIX [Concomitant]
     Dosage: 60MG PER DAY
     Route: 048
  6. SINGULAIR [Concomitant]
     Indication: ASTHMA
     Dosage: 1TAB PER DAY
     Route: 048
  7. MIOREL [Concomitant]
     Dosage: 8MG PER DAY
     Route: 048
  8. CLIMASTON [Concomitant]
     Dosage: 1TAB PER DAY
     Route: 048
  9. HAVLANE [Concomitant]
     Indication: INSOMNIA
     Dosage: 1MG PER DAY
  10. DOLIPRANE [Concomitant]
     Indication: PAIN
     Dosage: 1G FOUR TIMES PER DAY
     Route: 048

REACTIONS (10)
  - Adrenal insufficiency [Recovered/Resolved with Sequelae]
  - Blood cortisol decreased [Recovered/Resolved]
  - Adrenocorticotropic hormone deficiency [Recovered/Resolved]
  - Asthenia [Unknown]
  - Somnolence [Unknown]
  - Dry skin [Unknown]
  - Fluid retention [Unknown]
  - Blood creatine phosphokinase increased [Unknown]
  - Blood thyroid stimulating hormone increased [Unknown]
  - Weight increased [Unknown]
